FAERS Safety Report 25646577 (Version 1)
Quarter: 2025Q3

REPORT INFORMATION
  Report Type: Report from Study
  Country: US (occurrence: US)
  Receive Date: 20250805
  Receipt Date: 20250805
  Transmission Date: 20251021
  Serious: Yes (Hospitalization, Other)
  Sender: ABBVIE
  Company Number: US-ABBVIE-6400779

PATIENT
  Age: 83 Year
  Sex: Male

DRUGS (1)
  1. SKYRIZI [Suspect]
     Active Substance: RISANKIZUMAB-RZAA
     Indication: Psoriasis
     Route: 058
     Dates: start: 202410

REACTIONS (2)
  - Myocardial infarction [Recovering/Resolving]
  - Cardiac ablation [Unknown]

NARRATIVE: CASE EVENT DATE: 20250601
